FAERS Safety Report 23603516 (Version 1)
Quarter: 2024Q1

REPORT INFORMATION
  Report Type: Spontaneous
  Country: FR (occurrence: FR)
  Receive Date: 20240307
  Receipt Date: 20240307
  Transmission Date: 20240409
  Serious: Yes (Hospitalization)
  Sender: FDA-Public Use
  Company Number: None

PATIENT
  Age: 78 Year
  Sex: Female

DRUGS (7)
  1. FUROSEMIDE [Suspect]
     Active Substance: FUROSEMIDE
     Indication: Product used for unknown indication
     Dosage: 40 MG/DAY
  2. ALFACALCIDOL [Suspect]
     Active Substance: ALFACALCIDOL
     Indication: Hypoparathyroidism
     Dosage: 1 TABLET/DAY
     Dates: start: 20230804, end: 20230907
  3. FOSAVANCE [Suspect]
     Active Substance: ALENDRONATE SODIUM\CHOLECALCIFEROL
     Indication: Osteoporosis
     Dosage: NR 1 TIME PER WEEK
     Dates: start: 202308, end: 20230922
  4. AMIODARONE [Concomitant]
     Active Substance: AMIODARONE
  5. XARELTO [Concomitant]
     Active Substance: RIVAROXABAN
  6. LEVOTHYROXINE [Concomitant]
     Active Substance: LEVOTHYROXINE\LEVOTHYROXINE SODIUM
  7. PANTOPRAZOLE [Concomitant]
     Active Substance: PANTOPRAZOLE

REACTIONS (2)
  - Hypercalcaemia [Recovered/Resolved]
  - Acute kidney injury [Recovered/Resolved with Sequelae]

NARRATIVE: CASE EVENT DATE: 20230905
